APPROVED DRUG PRODUCT: ARIPIPRAZOLE
Active Ingredient: ARIPIPRAZOLE
Strength: 15MG
Dosage Form/Route: TABLET;ORAL
Application: A204838 | Product #004 | TE Code: AB
Applicant: AMNEAL PHARMACEUTICALS
Approved: Jun 17, 2016 | RLD: No | RS: No | Type: RX